FAERS Safety Report 15844977 (Version 2)
Quarter: 2019Q1

REPORT INFORMATION
  Report Type: Report from Study
  Country: None (occurrence: US)
  Receive Date: 20190119
  Receipt Date: 20190130
  Transmission Date: 20190417
  Serious: Yes (Other)
  Sender: FDA-Public Use
  Company Number: US-ABBVIE-19S-163-2626030-00

PATIENT
  Age: 71 Year
  Sex: Male

DRUGS (1)
  1. LUPRON DEPOT [Suspect]
     Active Substance: LEUPROLIDE ACETATE
     Indication: PROSTATE CANCER
     Dosage: MONTHLY
     Route: 050
     Dates: start: 20180706

REACTIONS (3)
  - Inguinal hernia [Unknown]
  - Post procedural fistula [Unknown]
  - Debridement [Unknown]

NARRATIVE: CASE EVENT DATE: 20180814
